FAERS Safety Report 10068586 (Version 2)
Quarter: 2014Q2

REPORT INFORMATION
  Report Type: Spontaneous
  Country: US (occurrence: US)
  Receive Date: 20140409
  Receipt Date: 20140501
  Transmission Date: 20141212
  Serious: Yes (Hospitalization)
  Sender: FDA-Public Use
  Company Number: US-GLAXOSMITHKLINE-A1048596A

PATIENT
  Age: 67 Year
  Sex: Female

DRUGS (1)
  1. VOTRIENT [Suspect]
     Indication: RENAL CANCER
     Dosage: 200MG UNKNOWN
     Route: 065
     Dates: start: 20131003

REACTIONS (10)
  - Dizziness [Unknown]
  - Blood pressure increased [Recovered/Resolved]
  - Head discomfort [Unknown]
  - Increased appetite [Unknown]
  - Weight increased [Unknown]
  - Eyelash discolouration [Unknown]
  - Skin discolouration [Unknown]
  - Nausea [Unknown]
  - Cholelithiasis [Unknown]
  - Arthralgia [Unknown]
